FAERS Safety Report 21872063 (Version 1)
Quarter: 2023Q1

REPORT INFORMATION
  Report Type: Spontaneous
  Country: US (occurrence: US)
  Receive Date: 20230117
  Receipt Date: 20230117
  Transmission Date: 20230418
  Serious: Yes (Hospitalization)
  Sender: FDA-Public Use
  Company Number: US-OAKRUM PHARMA-2023OAK00001

PATIENT
  Sex: Male

DRUGS (3)
  1. PYRIMETHAMINE [Suspect]
     Active Substance: PYRIMETHAMINE
     Indication: Toxoplasmosis
     Dosage: 75 MG, 1X/DAY
     Route: 048
  2. CLINDAMYCIN [Concomitant]
     Active Substance: CLINDAMYCIN
  3. LEUCOVORIN CALCIUM [Concomitant]
     Active Substance: LEUCOVORIN CALCIUM

REACTIONS (3)
  - Anuria [Recovering/Resolving]
  - Depressed level of consciousness [Recovering/Resolving]
  - Off label use [Not Recovered/Not Resolved]
